FAERS Safety Report 5357975-6 (Version None)
Quarter: 2007Q2

REPORT INFORMATION
  Report Type: 
  Country: None (occurrence: None)
  Receive Date: 20070612
  Receipt Date: 20070604
  Transmission Date: 20071010
  Serious: Yes (Other)
  Sender: FDA-Public Use
  Company Number: 163-20785-07060159

PATIENT
  Sex: Female

DRUGS (2)
  1. THALOMID [Suspect]
     Indication: DRUG USE FOR UNKNOWN INDICATION
     Dosage: SEE IMAGE
     Route: 048
     Dates: start: 20040101, end: 20040401
  2. THALOMID [Suspect]
     Indication: DRUG USE FOR UNKNOWN INDICATION
     Dosage: SEE IMAGE
     Route: 048
     Dates: start: 20070510

REACTIONS (1)
  - PREMATURE MENOPAUSE [None]
